FAERS Safety Report 7229989-2 (Version None)
Quarter: 2011Q1

REPORT INFORMATION
  Report Type: 
  Country: None (occurrence: None)
  Receive Date: 20110117
  Receipt Date: 20110111
  Transmission Date: 20110831
  Serious: Yes (Other)
  Sender: FDA-Public Use
  Company Number: DE-GILEAD-2011-0035111

PATIENT
  Sex: Male

DRUGS (3)
  1. TRUVADA [Suspect]
     Indication: HIV INFECTION
  2. SUSTIVA [Concomitant]
     Indication: HIV INFECTION
  3. REYATAZ [Concomitant]
     Indication: HIV INFECTION

REACTIONS (1)
  - SCOTOMA [None]
